FAERS Safety Report 7507325-1 (Version None)
Quarter: 2011Q2

REPORT INFORMATION
  Report Type: 
  Country: None (occurrence: None)
  Receive Date: 20110526
  Receipt Date: 20110523
  Transmission Date: 20111010
  Serious: Yes (Congenital Anomaly, Other)
  Sender: FDA-Public Use
  Company Number: PFIZER INC-2007095389

PATIENT
  Sex: Female

DRUGS (6)
  1. MILK OF MAGNESIA TAB [Concomitant]
  2. ZOLOFT [Suspect]
     Dosage: UNK
  3. ACETAMINOPHEN [Concomitant]
  4. DEMEROL [Concomitant]
  5. TENORETIC [Concomitant]
  6. PRENATAL VITAMINS [Concomitant]

REACTIONS (8)
  - GASTROOESOPHAGEAL REFLUX DISEASE [None]
  - ORGAN FAILURE [None]
  - VOCAL CORD PARALYSIS [None]
  - DEVELOPMENTAL DELAY [None]
  - COARCTATION OF THE AORTA [None]
  - CARDIAC SEPTAL DEFECT [None]
  - DRUG EXPOSURE DURING PREGNANCY [None]
  - CARDIAC FAILURE [None]
